FAERS Safety Report 22311499 (Version 1)
Quarter: 2023Q2

REPORT INFORMATION
  Report Type: Spontaneous
  Country: US (occurrence: US)
  Receive Date: 20230511
  Receipt Date: 20230511
  Transmission Date: 20230722
  Serious: No
  Sender: FDA-Public Use
  Company Number: US-LUNDBECK-DKLU3060682

PATIENT
  Age: 62 Year
  Sex: Female

DRUGS (3)
  1. VYEPTI [Suspect]
     Active Substance: EPTINEZUMAB-JJMR
     Indication: Migraine
     Route: 041
     Dates: start: 20221202
  2. ELETRIPTAN [Concomitant]
     Active Substance: ELETRIPTAN
     Indication: Migraine
     Route: 065
  3. BUTALBITAL [Concomitant]
     Active Substance: BUTALBITAL
     Indication: Migraine
     Route: 065

REACTIONS (2)
  - Migraine [Not Recovered/Not Resolved]
  - Drug ineffective [Unknown]
